FAERS Safety Report 10389023 (Version 1)
Quarter: 2014Q3

REPORT INFORMATION
  Report Type: Spontaneous
  Country: US (occurrence: None)
  Receive Date: 20140812
  Receipt Date: 20140812
  Transmission Date: 20150326
  Serious: Yes (Hospitalization)
  Sender: FDA-Public Use
  Company Number: AUR-APL-2014-08539

PATIENT
  Age: 17 Year
  Sex: Male

DRUGS (3)
  1. IBUPROFEN (IBUPROFEN) [Suspect]
     Active Substance: IBUPROFEN
     Indication: SUICIDAL IDEATION
     Route: 048
  2. CLONAZEPAM. [Suspect]
     Active Substance: CLONAZEPAM
     Indication: SUICIDAL IDEATION
     Route: 048
  3. LAMOTRIGINE (LAMOTRIGINE) [Suspect]
     Active Substance: LAMOTRIGINE
     Indication: SUICIDAL IDEATION
     Route: 048

REACTIONS (4)
  - Suicide attempt [None]
  - Mental status changes [None]
  - Intentional overdose [None]
  - Vomiting [None]
